FAERS Safety Report 13822316 (Version 1)
Quarter: 2017Q3

REPORT INFORMATION
  Report Type: Spontaneous
  Country: US (occurrence: US)
  Receive Date: 20170801
  Receipt Date: 20170801
  Transmission Date: 20171127
  Serious: No
  Sender: FDA-Public Use
  Company Number: US-IMPAX LABORATORIES, INC-2017-IPXL-00849

PATIENT
  Age: 70 Year
  Sex: Female
  Weight: 76 kg

DRUGS (5)
  1. ALBENZA [Suspect]
     Active Substance: ALBENDAZOLE
     Indication: ENTEROBIASIS
     Dosage: 200 MG, ONE TABLET, SINGLE
     Route: 048
     Dates: start: 20170307, end: 20170307
  2. LEVOTHYROXINE. [Concomitant]
     Active Substance: LEVOTHYROXINE
     Indication: THYROID DISORDER
     Dosage: UNK
     Route: 065
  3. ASPIRIN. [Concomitant]
     Active Substance: ASPIRIN
     Indication: PRODUCT USED FOR UNKNOWN INDICATION
     Dosage: UNK
  4. ALBENZA [Suspect]
     Active Substance: ALBENDAZOLE
     Dosage: 200 MG, ONE TABLET, SINGLE
     Route: 048
     Dates: start: 20170321, end: 20170321
  5. EMVERM [Suspect]
     Active Substance: MEBENDAZOLE
     Indication: ENTEROBIASIS
     Dosage: 100 MG, ONE TABLET, 2/DAY
     Route: 048
     Dates: start: 20170328, end: 20170330

REACTIONS (4)
  - Drug ineffective [Unknown]
  - Anal haemorrhage [Not Recovered/Not Resolved]
  - Drug ineffective for unapproved indication [Unknown]
  - Anal pruritus [Not Recovered/Not Resolved]

NARRATIVE: CASE EVENT DATE: 2017
